FAERS Safety Report 7094549-3 (Version None)
Quarter: 2010Q4

REPORT INFORMATION
  Report Type: 
  Country: None (occurrence: None)
  Receive Date: 20101110
  Receipt Date: 20101027
  Transmission Date: 20110411
  Serious: Yes (Life-Threatening, Other)
  Sender: FDA-Public Use
  Company Number: PHHY2010JP05266

PATIENT
  Sex: Female

DRUGS (1)
  1. TASIGNA [Suspect]
     Indication: CHRONIC MYELOID LEUKAEMIA
     Dosage: 400 MG/DAY
     Route: 048
     Dates: start: 20090820, end: 20090909

REACTIONS (8)
  - BLOOD BILIRUBIN INCREASED [None]
  - BONE MARROW FAILURE [None]
  - HEPATIC FUNCTION ABNORMAL [None]
  - LIPASE INCREASED [None]
  - PANCYTOPENIA [None]
  - PETECHIAE [None]
  - PLATELET COUNT DECREASED [None]
  - PURPURA [None]
